FAERS Safety Report 8819477 (Version 1)
Quarter: 2012Q4

REPORT INFORMATION
  Report Type: 
  Country: FR (occurrence: FR)
  Receive Date: 20120930
  Receipt Date: 20120930
  Transmission Date: 20130627
  Serious: Yes (Hospitalization)
  Sender: FDA-Public Use
  Company Number: FR-BRISTOL-MYERS SQUIBB COMPANY-16979726

PATIENT
  Age: 81 Year
  Sex: Female

DRUGS (10)
  1. PRAVASTATIN [Suspect]
     Route: 048
  2. GLUCOPHAGE [Suspect]
     Dosage: 1 DF: 1000 units NOS
  3. DAONIL [Suspect]
     Dosage: 1 DF: 5 units NOS
  4. HYZAAR [Concomitant]
     Dosage: 1 Df: 50/12.5 Units NOS
  5. LODOZ [Concomitant]
     Dosage: 1 DF: 10 Units NOS
  6. PLAVIX [Concomitant]
     Dosage: 1 Df: 75 Units NOS
  7. RISORDAN [Concomitant]
     Dosage: 1 Df: 20 Units NOS
  8. PRAXILENE [Concomitant]
     Dosage: 1 Df: 200 Units NOS
  9. LEVOTHYROX [Concomitant]
     Dosage: 1 DF: 50 Units NOS
  10. LYSANXIA [Concomitant]
     Dosage: 1 DF: 10 Units NOS

REACTIONS (2)
  - Rhabdomyolysis [Recovered/Resolved]
  - Diabetes mellitus [Recovered/Resolved]
